FAERS Safety Report 8608597-2 (Version None)
Quarter: 2012Q3

REPORT INFORMATION
  Report Type: 
  Country: None (occurrence: None)
  Receive Date: 20120821
  Receipt Date: 20120813
  Transmission Date: 20120928
  Serious: Yes (Life-Threatening, Hospitalization, Other)
  Sender: FDA-Public Use
  Company Number: FR-PFIZER INC-2008155665

PATIENT
  Age: 76 Year
  Sex: Male
  Weight: 74 kg

DRUGS (6)
  1. AMLODIPINE BESILATE [Concomitant]
     Indication: HYPERTENSION
  2. INNOHEP [Concomitant]
     Indication: VENOUS THROMBOSIS
  3. SUNITINIB MALATE [Suspect]
     Indication: PROSTATE CANCER
     Dosage: 37.5 MG, 1X/DAY
     Route: 048
     Dates: start: 20081114, end: 20081212
  4. BEFIZAL [Concomitant]
     Indication: DYSLIPIDAEMIA
  5. FLUINDIONE [Concomitant]
     Indication: VENOUS THROMBOSIS
     Dosage: UNK
     Route: 058
     Dates: start: 20030601, end: 20081031
  6. INNOHEP [Concomitant]
     Indication: PHLEBITIS
     Dosage: EVERY DAY
     Route: 058
     Dates: start: 20081031, end: 20081212

REACTIONS (3)
  - HAEMATEMESIS [None]
  - ANAEMIA [None]
  - OESOPHAGITIS ULCERATIVE [None]
